FAERS Safety Report 24910682 (Version 2)
Quarter: 2025Q1

REPORT INFORMATION
  Report Type: Spontaneous
  Country: US (occurrence: US)
  Receive Date: 20250131
  Receipt Date: 20250217
  Transmission Date: 20250409
  Serious: Yes (Other)
  Sender: PFIZER
  Company Number: US-PFIZER INC-202500010139

PATIENT
  Age: 82 Year
  Sex: Male
  Weight: 84 kg

DRUGS (10)
  1. VYNDAMAX [Suspect]
     Active Substance: TAFAMIDIS
     Indication: Cardiac amyloidosis
     Dosage: 61 MG, DAILY
     Route: 048
     Dates: start: 2024
  2. ACETAMINOPHEN [Concomitant]
     Active Substance: ACETAMINOPHEN
     Dosage: 325 MG, TAKE 2 TABLETS 3 TIMES A DAY AS NEEDED
     Route: 048
  3. ASPIRIN [Concomitant]
     Active Substance: ASPIRIN
     Dosage: 81 MG, 1X/DAY
     Route: 048
  4. CHOLECALCIFEROL [Concomitant]
     Active Substance: CHOLECALCIFEROL
     Dosage: 1000 IU, 1X/DAY
  5. DULOXETINE [Concomitant]
     Active Substance: DULOXETINE
     Dosage: 30 MG, 1X/DAY
     Route: 048
  6. FARXIGA [Concomitant]
     Active Substance: DAPAGLIFLOZIN PROPANEDIOL
     Dosage: 10 MG, 1X/DAY
     Route: 048
  7. FINASTERIDE [Concomitant]
     Active Substance: FINASTERIDE
     Dosage: 5 MG, 1X/DAY
     Route: 048
  8. INSULIN NOS [Concomitant]
     Active Substance: INSULIN NOS
  9. VITAMINS [Concomitant]
     Active Substance: VITAMINS
     Dosage: UNK, 1X/DAY
     Route: 048
  10. ROSUVASTATIN [Concomitant]
     Active Substance: ROSUVASTATIN
     Dosage: 5 MG, 1X/DAY
     Route: 048

REACTIONS (2)
  - Heart failure with preserved ejection fraction [Not Recovered/Not Resolved]
  - Hypotension [Not Recovered/Not Resolved]
